FAERS Safety Report 9284983 (Version 1)
Quarter: 2013Q2

REPORT INFORMATION
  Report Type: Spontaneous
  Country: FR (occurrence: FR)
  Receive Date: 20130513
  Receipt Date: 20130513
  Transmission Date: 20140414
  Serious: Yes (Disabling)
  Sender: FDA-Public Use
  Company Number: PHHY2013FR045234

PATIENT
  Age: 72 Year
  Sex: Female

DRUGS (4)
  1. FEMARA [Suspect]
     Indication: BREAST CANCER
     Dosage: UNK
     Route: 048
  2. ARIMIDEX [Suspect]
     Indication: BREAST CANCER
     Dosage: UNK
  3. SURGIDERM [Concomitant]
     Dosage: UNK UKN, UNK
     Dates: start: 201102
  4. HORMONES NOS [Concomitant]
     Dosage: UNK UKN, UNK
     Dates: start: 201209

REACTIONS (1)
  - Granuloma skin [Not Recovered/Not Resolved]
